FAERS Safety Report 6102207-4 (Version None)
Quarter: 2009Q1

REPORT INFORMATION
  Report Type: 
  Country: None (occurrence: None)
  Receive Date: 20090303
  Receipt Date: 20090303
  Transmission Date: 20090719
  Serious: Yes (Life-Threatening, Hospitalization)
  Sender: FDA-Public Use
  Company Number: None

PATIENT
  Age: 76 Year
  Sex: Female
  Weight: 72.5755 kg

DRUGS (1)
  1. MOBIC [Suspect]
     Indication: ARTHRITIS
     Dosage: 1 TO 2 CAPSULED DAILY
     Dates: start: 20090202, end: 20090218

REACTIONS (3)
  - CEREBROVASCULAR DISORDER [None]
  - HAEMORRHAGIC STROKE [None]
  - VASCULAR RUPTURE [None]
